FAERS Safety Report 12116475 (Version 3)
Quarter: 2016Q2

REPORT INFORMATION
  Report Type: Spontaneous
  Country: US (occurrence: US)
  Receive Date: 20160225
  Receipt Date: 20160525
  Transmission Date: 20160815
  Serious: Yes (Other)
  Sender: FDA-Public Use
  Company Number: US-TEVA-637286USA

PATIENT
  Age: 54 Year
  Sex: Female

DRUGS (7)
  1. ADVAIR HFA [Concomitant]
     Active Substance: FLUTICASONE PROPIONATE\SALMETEROL XINAFOATE
  2. ZECUITY [Suspect]
     Active Substance: SUMATRIPTAN SUCCINATE
     Dosage: 6.5 MG / 4 HOURS
     Route: 062
  3. TOPAMAX [Concomitant]
     Active Substance: TOPIRAMATE
  4. SINGULAIR [Concomitant]
     Active Substance: MONTELUKAST SODIUM
  5. PROCARDIA [Concomitant]
     Active Substance: NIFEDIPINE
  6. DEXILANT [Concomitant]
     Active Substance: DEXLANSOPRAZOLE
  7. IMITREX [Concomitant]
     Active Substance: SUMATRIPTAN SUCCINATE

REACTIONS (8)
  - Application site erythema [Unknown]
  - Application site rash [Recovered/Resolved]
  - Sunburn [Recovered/Resolved]
  - Application site swelling [Unknown]
  - Application site pain [Recovered/Resolved]
  - Application site urticaria [Unknown]
  - Drug effect delayed [Unknown]
  - Application site pruritus [Unknown]

NARRATIVE: CASE EVENT DATE: 20151215
